FAERS Safety Report 9063244 (Version 1)
Quarter: 2013Q1

REPORT INFORMATION
  Report Type: Spontaneous
  Country: GB (occurrence: GB)
  Receive Date: 20130213
  Receipt Date: 20130213
  Transmission Date: 20140127
  Serious: Yes (Other)
  Sender: FDA-Public Use
  Company Number: GB-GLAXOSMITHKLINE-B0864778A

PATIENT
  Age: 37 Year
  Sex: Female

DRUGS (2)
  1. BUPROPION HYDROCHLORIDE [Suspect]
     Indication: SMOKING CESSATION THERAPY
     Dosage: 300MG PER DAY
     Route: 048
     Dates: start: 20121128, end: 20130108
  2. CANDESARTAN [Concomitant]

REACTIONS (4)
  - Suicidal ideation [Recovered/Resolved]
  - Emotional disorder [Recovered/Resolved]
  - Thinking abnormal [Recovered/Resolved]
  - Aggression [Recovered/Resolved]
